FAERS Safety Report 19194686 (Version 1)
Quarter: 2021Q2

REPORT INFORMATION
  Report Type: Spontaneous
  Country: US (occurrence: US)
  Receive Date: 20210429
  Receipt Date: 20210429
  Transmission Date: 20210717
  Serious: Yes (Hospitalization)
  Sender: FDA-Public Use
  Company Number: US-INTRA-CELLULAR THERAPIES, INC.-2021ICT00203

PATIENT
  Age: 2 Decade
  Sex: Male

DRUGS (1)
  1. CAPLYTA [Suspect]
     Active Substance: LUMATEPERONE
     Indication: SCHIZOPHRENIA
     Dosage: UNK

REACTIONS (4)
  - Schizophrenia [Unknown]
  - Unevaluable event [Unknown]
  - Road traffic accident [Recovered/Resolved]
  - Theft [Recovered/Resolved]
